FAERS Safety Report 21375409 (Version 1)
Quarter: 2022Q3

REPORT INFORMATION
  Report Type: Spontaneous
  Country: FR (occurrence: FR)
  Receive Date: 20220926
  Receipt Date: 20220926
  Transmission Date: 20221027
  Serious: Yes (Hospitalization)
  Sender: FDA-Public Use
  Company Number: FR-JNJFOC-20220950574

PATIENT
  Age: 70 Year
  Sex: Female
  Weight: 55 kg

DRUGS (4)
  1. YONDELIS [Suspect]
     Active Substance: TRABECTEDIN
     Indication: Leiomyosarcoma recurrent
     Dosage: 6 CYCLES IN TOTAL
     Route: 042
     Dates: start: 20220408
  2. YONDELIS [Suspect]
     Active Substance: TRABECTEDIN
     Dosage: 6 CYCLES IN TOTAL
     Route: 042
     Dates: start: 20220818
  3. BISOPROLOL [Concomitant]
     Active Substance: BISOPROLOL
  4. DOXORUBICIN HYDROCHLORIDE [Concomitant]
     Active Substance: DOXORUBICIN HYDROCHLORIDE
     Route: 065
     Dates: start: 20220408, end: 20220713

REACTIONS (1)
  - Cholangitis [Recovering/Resolving]

NARRATIVE: CASE EVENT DATE: 20220824
